FAERS Safety Report 17286579 (Version 1)
Quarter: 2020Q1

REPORT INFORMATION
  Report Type: Spontaneous
  Country: US (occurrence: US)
  Receive Date: 20191231
  Receipt Date: 20191231
  Transmission Date: 20200409
  Serious: Yes (Hospitalization)
  Sender: FDA-Public Use
  Company Number: None

PATIENT
  Sex: Female

DRUGS (28)
  1. BENZONATATE. [Concomitant]
     Active Substance: BENZONATATE
  2. HYDROCHLOROT TABLET [Concomitant]
  3. AZITHROMYCIN ANHYDROUS. [Concomitant]
     Active Substance: AZITHROMYCIN ANHYDROUS
  4. VALGANCLCIOV TABLET [Concomitant]
  5. VALACYCLOVIR [Concomitant]
     Active Substance: VALACYCLOVIR HYDROCHLORIDE
  6. PANTOPRAZOLE [Concomitant]
     Active Substance: PANTOPRAZOLE
  7. XARELTO [Concomitant]
     Active Substance: RIVAROXABAN
  8. POLYETHYL [Concomitant]
  9. LOPERAMIDE [Concomitant]
     Active Substance: LOPERAMIDE
  10. ONCLANSETRON [Concomitant]
  11. SMZ/TMP DS TABLET [Concomitant]
  12. DEXAMETHASON [Concomitant]
     Active Substance: DEXAMETHASONE
  13. AMIODIPINE [Concomitant]
  14. PRAVASTATIN. [Concomitant]
     Active Substance: PRAVASTATIN
  15. NITROFURANTN [Concomitant]
     Active Substance: NITROFURANTOIN
  16. OXYCODONE [Concomitant]
     Active Substance: OXYCODONE
  17. ZINC SULFATE. [Concomitant]
     Active Substance: ZINC SULFATE
  18. FUROSEMIDE. [Concomitant]
     Active Substance: FUROSEMIDE
  19. ACYCLAVIR [Concomitant]
  20. QUINAPRIL. [Concomitant]
     Active Substance: QUINAPRIL
  21. GLATIRAMER 40MG/ML [Suspect]
     Active Substance: GLATIRAMER
     Route: 058
     Dates: start: 201902
  22. AMOX/K CLAB TABLET [Concomitant]
  23. NINIARO [Concomitant]
  24. GLYC POW [Concomitant]
  25. ENOXAPARIN [Concomitant]
     Active Substance: ENOXAPARIN
  26. METOPROLOL TARTRATE. [Concomitant]
     Active Substance: METOPROLOL TARTRATE
  27. CEPHALEXIN. [Concomitant]
     Active Substance: CEPHALEXIN
  28. TRAMADOL. [Concomitant]
     Active Substance: TRAMADOL

REACTIONS (1)
  - Pneumonia [None]
